FAERS Safety Report 8300779-2 (Version None)
Quarter: 2012Q2

REPORT INFORMATION
  Report Type: 
  Country: None (occurrence: None)
  Receive Date: 20120420
  Receipt Date: 20120417
  Transmission Date: 20120825
  Serious: Yes (Hospitalization, Other)
  Sender: FDA-Public Use
  Company Number: PHEH2006US04086

PATIENT
  Sex: Male

DRUGS (19)
  1. ANTIHISTAMINES [Concomitant]
     Indication: SEASONAL ALLERGY
  2. VITAMIN B6 [Concomitant]
  3. ZOMETA [Suspect]
     Dosage: UNK
     Dates: start: 20090101
  4. TESTIM [Concomitant]
  5. ALPHA LIPOIC ACID [Concomitant]
  6. DIOVAN [Concomitant]
  7. COUMADIN [Concomitant]
  8. AREDIA [Suspect]
     Dosage: UNK
     Dates: start: 19991201, end: 20020301
  9. STEROIDS NOS [Concomitant]
     Dates: start: 20040101, end: 20040101
  10. ZOMETA [Suspect]
     Dosage: UNK
     Route: 042
     Dates: start: 20000101, end: 20040803
  11. FLONASE [Concomitant]
  12. LASIX [Concomitant]
  13. VITAMIN E [Concomitant]
  14. THALIDOMIDE [Concomitant]
     Indication: MULTIPLE MYELOMA
     Dosage: 200 MG, QD
  15. SYNTHROID [Concomitant]
  16. VYTORIN [Concomitant]
  17. ZOMETA [Suspect]
     Dosage: UNK
     Dates: start: 20020301, end: 20050401
  18. DECADRON [Concomitant]
     Dosage: 40 MG, UNK
  19. VELCADE [Concomitant]
     Indication: MULTIPLE MYELOMA

REACTIONS (70)
  - DENTAL CARIES [None]
  - MORGANELLA INFECTION [None]
  - DEAFNESS [None]
  - DYSPNOEA [None]
  - ATRIAL FIBRILLATION [None]
  - AORTIC STENOSIS [None]
  - SUBACUTE ENDOCARDITIS [None]
  - INFLUENZA [None]
  - MYALGIA [None]
  - HYPOAESTHESIA [None]
  - VITAMIN B12 DEFICIENCY [None]
  - NOCTURIA [None]
  - DISCOMFORT [None]
  - OSTEOMYELITIS [None]
  - NEOPLASM MALIGNANT [None]
  - CORONARY ARTERY DISEASE [None]
  - MUSCLE INJURY [None]
  - HYPERLIPIDAEMIA [None]
  - MENTAL STATUS CHANGES [None]
  - SACROILIITIS [None]
  - TINEA PEDIS [None]
  - BONE PAIN [None]
  - FATIGUE [None]
  - PNEUMONIA [None]
  - OSTEONECROSIS OF JAW [None]
  - STOMATITIS [None]
  - HYPOGONADISM [None]
  - AORTIC VALVE DISEASE [None]
  - VENTRICULAR HYPERTROPHY [None]
  - RENAL FAILURE [None]
  - ABDOMINAL PAIN [None]
  - BACK PAIN [None]
  - ASTHENIA [None]
  - PYREXIA [None]
  - SWELLING [None]
  - ERYTHEMA [None]
  - GINGIVAL ULCERATION [None]
  - BLADDER CANCER [None]
  - ORAL CANDIDIASIS [None]
  - LEFT ATRIAL DILATATION [None]
  - CARDIAC FAILURE CONGESTIVE [None]
  - OTITIS MEDIA ACUTE [None]
  - DIABETES MELLITUS [None]
  - SPINAL CORD COMPRESSION [None]
  - BONE DISORDER [None]
  - HYPERTENSION [None]
  - METASTASES TO SPINE [None]
  - PERIODONTAL DISEASE [None]
  - SICK SINUS SYNDROME [None]
  - ANAEMIA [None]
  - ARTHRALGIA [None]
  - BRONCHITIS [None]
  - OEDEMA [None]
  - OROPHARYNGEAL PAIN [None]
  - COUGH [None]
  - PAIN [None]
  - TOOTH INFECTION [None]
  - DRY MOUTH [None]
  - HYPOTHYROIDISM [None]
  - ARTHROPOD BITE [None]
  - DYSPHAGIA [None]
  - NAUSEA [None]
  - VOMITING [None]
  - SENSITIVITY OF TEETH [None]
  - COSTOCHONDRITIS [None]
  - AORTIC ARTERIOSCLEROSIS [None]
  - NEUROPATHY PERIPHERAL [None]
  - BURSITIS [None]
  - CELLULITIS [None]
  - INSOMNIA [None]
